FAERS Safety Report 9222414 (Version 1)
Quarter: 2013Q2

REPORT INFORMATION
  Report Type: Spontaneous
  Country: US (occurrence: US)
  Receive Date: 20130410
  Receipt Date: 20130410
  Transmission Date: 20140414
  Serious: Yes (Hospitalization)
  Sender: FDA-Public Use
  Company Number: US-BAYER-2013-043743

PATIENT
  Age: 38 Year
  Sex: Female
  Weight: 63 kg

DRUGS (5)
  1. YAZ [Suspect]
  2. YASMIN [Suspect]
  3. LEVOTHYROXINE [Concomitant]
     Dosage: 88MCG, A DAY
     Route: 048
  4. XYZAL [Concomitant]
     Dosage: 5 MG, UNK
  5. SYNTHROID [Concomitant]

REACTIONS (1)
  - Pulmonary embolism [None]
